FAERS Safety Report 21742277 (Version 1)
Quarter: 2022Q4

REPORT INFORMATION
  Report Type: Spontaneous
  Country: US (occurrence: None)
  Receive Date: 20221216
  Receipt Date: 20221216
  Transmission Date: 20230112
  Serious: No
  Sender: FDA-Public Use
  Company Number: None

PATIENT
  Age: 73 Year
  Sex: Male
  Weight: 92.08 kg

DRUGS (7)
  1. INLYTA [Suspect]
     Active Substance: AXITINIB
     Dosage: FREQUENCY : TWICE A DAY;?
     Route: 048
     Dates: start: 202207
  2. AMLODIPINE [Concomitant]
  3. ATORVASTATIN [Concomitant]
  4. CALCIUM/VITAMIN D3 [Concomitant]
  5. HYDROCHLOROTHIAZIDE [Concomitant]
  6. LOSARTAN [Concomitant]
  7. PRESERVISION AREDS [Concomitant]

REACTIONS (1)
  - Blood pressure increased [None]
